FAERS Safety Report 11529361 (Version 8)
Quarter: 2016Q4

REPORT INFORMATION
  Report Type: Report from Study
  Country: CA (occurrence: CA)
  Receive Date: 20150921
  Receipt Date: 20161012
  Transmission Date: 20170206
  Serious: Yes (Hospitalization, Other)
  Sender: FDA-Public Use
  Company Number: PHHY2015CA110989

PATIENT
  Age: 51 Year
  Sex: Male

DRUGS (1)
  1. SIGNIFOR LAR [Suspect]
     Active Substance: PASIREOTIDE
     Dosage: 20 MG, QMO (EVERY 4 WEEKS)
     Route: 030
     Dates: start: 20080301, end: 20160906

REACTIONS (8)
  - Renal disorder [Unknown]
  - Bipolar disorder [Unknown]
  - Blood pressure increased [Unknown]
  - Mania [Unknown]
  - Diabetes mellitus [Unknown]
  - Blood pressure systolic increased [Unknown]
  - Blood glucose fluctuation [Unknown]
  - Heart rate decreased [Unknown]

NARRATIVE: CASE EVENT DATE: 2008
